FAERS Safety Report 14016997 (Version 3)
Quarter: 2017Q4

REPORT INFORMATION
  Report Type: Report from Study
  Country: ES (occurrence: ES)
  Receive Date: 20170927
  Receipt Date: 20171016
  Transmission Date: 20180321
  Serious: Yes (Hospitalization, Other)
  Sender: FDA-Public Use
  Company Number: ES-BRISTOL-MYERS SQUIBB COMPANY-BMS-2017-071325

PATIENT
  Age: 59 Year
  Sex: Female
  Weight: 60.2 kg

DRUGS (6)
  1. IPILIMUMAB [Suspect]
     Active Substance: IPILIMUMAB
     Indication: SMALL CELL LUNG CANCER
     Dosage: 190 MG, UNK
     Route: 065
     Dates: start: 20170629, end: 20170720
  2. IPILIMUMAB [Suspect]
     Active Substance: IPILIMUMAB
     Indication: PRODUCT USED FOR UNKNOWN INDICATION
     Dosage: 190 MG, UNK
     Route: 065
     Dates: end: 20170921
  3. NIVOLUMAB [Suspect]
     Active Substance: NIVOLUMAB
     Indication: SMALL CELL LUNG CANCER
     Dosage: 63 MG, UNK
     Route: 065
     Dates: start: 20170629, end: 20170720
  4. NIVOLUMAB [Suspect]
     Active Substance: NIVOLUMAB
     Indication: PRODUCT USED FOR UNKNOWN INDICATION
     Dosage: 63 MG, UNK
     Route: 065
     Dates: end: 20170921
  5. ETOPOSIDE. [Concomitant]
     Active Substance: ETOPOSIDE
     Indication: SMALL CELL LUNG CANCER
     Dosage: UNK MG, UNK
     Route: 065
     Dates: start: 20170308, end: 20170512
  6. CARBOPLATIN. [Concomitant]
     Active Substance: CARBOPLATIN
     Indication: SMALL CELL LUNG CANCER
     Dosage: UNK MG, UNK
     Route: 065
     Dates: start: 20170308, end: 20170510

REACTIONS (6)
  - General physical health deterioration [Unknown]
  - Encephalitis [Unknown]
  - Thyroiditis [Unknown]
  - Disorientation [Unknown]
  - Urinary incontinence [Unknown]
  - Hyperthyroidism [Recovered/Resolved]

NARRATIVE: CASE EVENT DATE: 20170721
